FAERS Safety Report 7496774-6 (Version None)
Quarter: 2011Q2

REPORT INFORMATION
  Report Type: 
  Country: None (occurrence: None)
  Receive Date: 20110523
  Receipt Date: 20110516
  Transmission Date: 20111010
  Serious: Yes (Death)
  Sender: FDA-Public Use
  Company Number: B0719980A

PATIENT
  Age: 14 Year
  Sex: Female

DRUGS (1)
  1. ONDANSETRON [Suspect]
     Dosage: 4MG PER DAY
     Route: 030

REACTIONS (2)
  - VENTRICULAR TACHYCARDIA [None]
  - CIRCULATORY COLLAPSE [None]
